FAERS Safety Report 7404073-3 (Version None)
Quarter: 2011Q2

REPORT INFORMATION
  Report Type: 
  Country: None (occurrence: None)
  Receive Date: 20110408
  Receipt Date: 20110330
  Transmission Date: 20111010
  Serious: Yes (Other)
  Sender: FDA-Public Use
  Company Number: US-ASTRAZENECA-2011SE18302

PATIENT
  Age: 85 Year
  Sex: Female

DRUGS (1)
  1. NEXIUM [Suspect]
     Route: 048

REACTIONS (6)
  - MOUTH INJURY [None]
  - UPPER LIMB FRACTURE [None]
  - DIZZINESS [None]
  - FALL [None]
  - PERIORBITAL HAEMATOMA [None]
  - HEAD INJURY [None]
